FAERS Safety Report 16659981 (Version 11)
Quarter: 2023Q1

REPORT INFORMATION
  Report Type: Report from Study
  Country: CO (occurrence: CO)
  Receive Date: 20190802
  Receipt Date: 20230227
  Transmission Date: 20230418
  Serious: Yes (Life-Threatening, Other)
  Sender: FDA-Public Use
  Company Number: PHHY2019CO175821

PATIENT
  Age: 8 Year
  Sex: Male
  Weight: 33.5 kg

DRUGS (48)
  1. ILARIS [Suspect]
     Active Substance: CANAKINUMAB
     Indication: Familial mediterranean fever
     Dosage: 75 MG (2 MG/KG), EVERY 28 DAYS
     Route: 058
     Dates: start: 20160701
  2. ILARIS [Suspect]
     Active Substance: CANAKINUMAB
     Dosage: 75 MG (2MG/KG), EVERY 28 DAYS
     Route: 058
     Dates: start: 20160805
  3. ILARIS [Suspect]
     Active Substance: CANAKINUMAB
     Dosage: 75 MG (2MG/KG), EVERY 28 DAYS
     Route: 058
     Dates: start: 20161003
  4. ILARIS [Suspect]
     Active Substance: CANAKINUMAB
     Dosage: 75 MG (2MG/KG), EVERY 28 DAYS
     Route: 058
     Dates: start: 20161128
  5. ILARIS [Suspect]
     Active Substance: CANAKINUMAB
     Dosage: 75 MG (2MG/KG), EVERY 28 DAYS
     Route: 058
     Dates: start: 20161228
  6. ILARIS [Suspect]
     Active Substance: CANAKINUMAB
     Dosage: 75 MG (2MG/KG), EVERY 28 DAYS
     Route: 058
     Dates: start: 20170124
  7. ILARIS [Suspect]
     Active Substance: CANAKINUMAB
     Dosage: 75 MG (2MG/KG), EVERY 28 DAYS
     Route: 058
     Dates: start: 20170224
  8. ILARIS [Suspect]
     Active Substance: CANAKINUMAB
     Dosage: 75 MG (2MG/KG), EVERY 28 DAYS
     Route: 058
     Dates: start: 20170401
  9. ILARIS [Suspect]
     Active Substance: CANAKINUMAB
     Dosage: 75 MG (2MG/KG), EVERY 28 DAYS
     Route: 058
     Dates: start: 20170501
  10. ILARIS [Suspect]
     Active Substance: CANAKINUMAB
     Dosage: 75 MG (2MG/KG), EVERY 28 DAYS
     Route: 058
     Dates: start: 20170529
  11. ILARIS [Suspect]
     Active Substance: CANAKINUMAB
     Dosage: 75 MG (2MG/KG), EVERY 28 DAYS
     Route: 058
     Dates: start: 20170620
  12. ILARIS [Suspect]
     Active Substance: CANAKINUMAB
     Dosage: 75 MG (2MG/KG), EVERY 28 DAYS
     Route: 058
     Dates: start: 20170718
  13. ILARIS [Suspect]
     Active Substance: CANAKINUMAB
     Dosage: 75 MG (2MG/KG), EVERY 28 DAYS
     Route: 058
     Dates: start: 20170817
  14. ILARIS [Suspect]
     Active Substance: CANAKINUMAB
     Dosage: 75 MG (2MG/KG), EVERY 28 DAYS
     Route: 058
     Dates: start: 20170914
  15. ILARIS [Suspect]
     Active Substance: CANAKINUMAB
     Dosage: 75 MG (2MG/KG), EVERY 28 DAYS
     Route: 058
     Dates: start: 20171020
  16. ILARIS [Suspect]
     Active Substance: CANAKINUMAB
     Dosage: 75 MG (2MG/KG), EVERY 28 DAYS
     Route: 058
     Dates: start: 20171117
  17. ILARIS [Suspect]
     Active Substance: CANAKINUMAB
     Dosage: 75 MG (2MG/KG), EVERY 28 DAYS
     Route: 058
     Dates: start: 20171213
  18. ILARIS [Suspect]
     Active Substance: CANAKINUMAB
     Dosage: 75 MG, QMO
     Route: 058
  19. ILARIS [Suspect]
     Active Substance: CANAKINUMAB
     Dosage: 75 MG (2MG/KG), EVERY 28 DAYS
     Route: 058
     Dates: start: 20180119
  20. ILARIS [Suspect]
     Active Substance: CANAKINUMAB
     Dosage: 75 MG (2MG/KG), EVERY 28 DAYS
     Route: 058
     Dates: start: 20180216
  21. ILARIS [Suspect]
     Active Substance: CANAKINUMAB
     Dosage: 75 MG (2MG/KG), EVERY 28 DAYS
     Route: 058
     Dates: start: 20180315
  22. ILARIS [Suspect]
     Active Substance: CANAKINUMAB
     Dosage: 75 MG (2MG/KG), EVERY 28 DAYS
     Route: 058
     Dates: start: 20180427
  23. ILARIS [Suspect]
     Active Substance: CANAKINUMAB
     Dosage: 75 MG (2MG/KG), EVERY 28 DAYS
     Route: 058
     Dates: start: 20180622
  24. ILARIS [Suspect]
     Active Substance: CANAKINUMAB
     Dosage: 75 MG (2MG/KG), EVERY 28 DAYS
     Route: 058
     Dates: start: 20180719
  25. ILARIS [Suspect]
     Active Substance: CANAKINUMAB
     Dosage: 75 MG (2MG/KG), EVERY 28 DAYS
     Route: 058
     Dates: start: 20180815
  26. ILARIS [Suspect]
     Active Substance: CANAKINUMAB
     Dosage: 75 MG (2MG/KG), EVERY 28 DAYS
     Route: 058
     Dates: start: 20180912
  27. ILARIS [Suspect]
     Active Substance: CANAKINUMAB
     Dosage: 75 MG (2MG/KG), EVERY 28 DAYS
     Route: 058
     Dates: start: 20181029
  28. ILARIS [Suspect]
     Active Substance: CANAKINUMAB
     Dosage: 75 MG (2MG/KG), EVERY 28 DAYS
     Route: 058
     Dates: start: 20181126
  29. ILARIS [Suspect]
     Active Substance: CANAKINUMAB
     Dosage: 75 MG (2MG/KG), EVERY 28 DAYS
     Route: 058
     Dates: start: 20181228
  30. ILARIS [Suspect]
     Active Substance: CANAKINUMAB
     Dosage: 75 MG (2MG/KG), EVERY 28 DAYS
     Route: 058
     Dates: start: 20190125
  31. ILARIS [Suspect]
     Active Substance: CANAKINUMAB
     Dosage: 75 MG (2MG/KG), EVERY 28 DAYS
     Route: 058
     Dates: start: 20190224
  32. ILARIS [Suspect]
     Active Substance: CANAKINUMAB
     Dosage: 75 MG (2MG/KG), EVERY 28 DAYS
     Route: 058
     Dates: start: 20190323
  33. ILARIS [Suspect]
     Active Substance: CANAKINUMAB
     Dosage: 75 MG (2MG/KG), EVERY 28 DAYS
     Route: 058
     Dates: start: 20190515
  34. ILARIS [Suspect]
     Active Substance: CANAKINUMAB
     Dosage: UNK
     Route: 058
     Dates: start: 20190622
  35. ILARIS [Suspect]
     Active Substance: CANAKINUMAB
     Dosage: 75 MG, QMO
     Route: 058
     Dates: start: 2017
  36. ILARIS [Suspect]
     Active Substance: CANAKINUMAB
     Dosage: 75 MG, EVERY 27 DAYS
     Route: 058
  37. FLUTICASONE PROPIONATE\SALMETEROL XINAFOATE [Suspect]
     Active Substance: FLUTICASONE PROPIONATE\SALMETEROL XINAFOATE
     Indication: Product used for unknown indication
     Dosage: UNK
     Dates: start: 201801
  38. METOPROLOL [Suspect]
     Active Substance: METOPROLOL
     Indication: Product used for unknown indication
     Dosage: 25 MG, QD
     Route: 048
  39. DOXAZOSIN [Concomitant]
     Active Substance: DOXAZOSIN MESYLATE
     Indication: Urinary tract infection
     Dosage: 1 MG, QD
     Route: 065
     Dates: start: 201603
  40. DOXAZOSIN [Concomitant]
     Active Substance: DOXAZOSIN MESYLATE
     Dosage: 2.5 MG, QD (SINCE HE WAS 2 YEARS OLD )
     Route: 048
  41. ISONIAZID [Concomitant]
     Active Substance: ISONIAZID
     Indication: Product used for unknown indication
     Dosage: 300 MG, QD
     Route: 065
     Dates: start: 201603, end: 20190116
  42. VALPROIC ACID [Concomitant]
     Active Substance: VALPROIC ACID
     Indication: Product used for unknown indication
     Dosage: UNK
     Route: 065
     Dates: start: 201506, end: 201810
  43. FLUTICASONE [Concomitant]
     Active Substance: FLUTICASONE
     Indication: Product used for unknown indication
     Dosage: UNK
     Route: 045
     Dates: start: 201802
  44. FLUNARIZINE [Concomitant]
     Active Substance: FLUNARIZINE
     Indication: Migraine
     Dosage: 10 OT, QD
     Route: 065
  45. POLYETHYLENE GLYCOLS [Concomitant]
     Active Substance: POLYETHYLENE GLYCOLS
     Indication: Product used for unknown indication
     Dosage: 15 MG, QD
     Route: 065
  46. ESOMEPRAZOLE [Concomitant]
     Active Substance: ESOMEPRAZOLE
     Indication: Product used for unknown indication
     Dosage: 20 MG, QD
     Route: 048
  47. LANSOPRAZOLE [Concomitant]
     Active Substance: LANSOPRAZOLE
     Indication: Product used for unknown indication
     Dosage: 30 MG, Q12H
     Route: 065
  48. IBUPROFEN [Concomitant]
     Active Substance: IBUPROFEN
     Indication: Gastrooesophageal reflux disease
     Dosage: UNK
     Route: 065

REACTIONS (36)
  - Xeroderma [Unknown]
  - Pallor [Unknown]
  - Platelet anisocytosis [Unknown]
  - Familial mediterranean fever [Not Recovered/Not Resolved]
  - Asthenia [Unknown]
  - Mouth ulceration [Unknown]
  - Pyrexia [Unknown]
  - Lymphadenopathy [Unknown]
  - Arthritis [Not Recovered/Not Resolved]
  - Urinary tract obstruction [Unknown]
  - Haemoglobin decreased [Not Recovered/Not Resolved]
  - Blood creatinine increased [Not Recovered/Not Resolved]
  - Serum ferritin increased [Not Recovered/Not Resolved]
  - Blood urea increased [Not Recovered/Not Resolved]
  - Blood lactate dehydrogenase increased [Not Recovered/Not Resolved]
  - Blood albumin increased [Not Recovered/Not Resolved]
  - Red blood cell sedimentation rate increased [Not Recovered/Not Resolved]
  - C-reactive protein increased [Not Recovered/Not Resolved]
  - Immunodeficiency [Unknown]
  - Anaemia [Unknown]
  - Blood pressure decreased [Unknown]
  - Respiratory disorder [Unknown]
  - Ecchymosis [Unknown]
  - Abnormal clotting factor [Unknown]
  - Blepharitis [Unknown]
  - Abdominal pain [Unknown]
  - Headache [Unknown]
  - Bundle branch block right [Unknown]
  - Feeling abnormal [Unknown]
  - Pain in extremity [Recovered/Resolved]
  - Speech disorder [Not Recovered/Not Resolved]
  - Gait inability [Not Recovered/Not Resolved]
  - Condition aggravated [Not Recovered/Not Resolved]
  - Product use issue [Unknown]
  - Inappropriate schedule of product administration [Unknown]
  - Off label use [Unknown]

NARRATIVE: CASE EVENT DATE: 20170411
